FAERS Safety Report 9440680 (Version 1)
Quarter: 2013Q3

REPORT INFORMATION
  Report Type: Spontaneous
  Country: CZ (occurrence: CZ)
  Receive Date: 20130805
  Receipt Date: 20130805
  Transmission Date: 20140515
  Serious: Yes (Life-Threatening, Hospitalization, Other)
  Sender: FDA-Public Use
  Company Number: CZ-B.I. PHARMACEUTICALS,INC./RIDGEFIELD-2013-BI-23345GD

PATIENT
  Age: 83 Year
  Sex: Female

DRUGS (1)
  1. PRADAXA [Suspect]
     Indication: ATRIAL FIBRILLATION
     Dosage: 300 MG
     Route: 048

REACTIONS (6)
  - Gastric ulcer haemorrhage [Recovered/Resolved]
  - Hypotension [Unknown]
  - Asthenia [Unknown]
  - Melaena [Unknown]
  - Bradycardia [Unknown]
  - Overdose [Unknown]
